FAERS Safety Report 7699066 (Version 4)
Quarter: 2014Q1

REPORT INFORMATION
  Report Type: Spontaneous
  Country: US (occurrence: US)
  Receive Date: 20101208
  Receipt Date: 20140121
  Transmission Date: 20141002
  Serious: Yes (Hospitalization)
  Sender: FDA-Public Use
  Company Number: US-US-EMD SERONO, INC.-7030165

PATIENT
  Sex: Female

DRUGS (4)
  1. REBIF [Suspect]
     Indication: MULTIPLE SCLEROSIS
     Route: 058
     Dates: start: 2005, end: 201007
  2. REBIF [Suspect]
     Dates: start: 20101130
  3. REBIF [Suspect]
     Route: 058
  4. VESICARE                           /01735901/ [Concomitant]
     Indication: BLADDER DISORDER
     Dates: end: 201006

REACTIONS (6)
  - Small intestinal perforation [Unknown]
  - Colitis ulcerative [Unknown]
  - Clostridium difficile infection [Unknown]
  - Malaise [Unknown]
  - Abdominal discomfort [Unknown]
  - Dehydration [Unknown]
